FAERS Safety Report 11323515 (Version 1)
Quarter: 2015Q3

REPORT INFORMATION
  Report Type: Spontaneous
  Country: ES (occurrence: ES)
  Receive Date: 20150730
  Receipt Date: 20150730
  Transmission Date: 20151125
  Serious: Yes (Other)
  Sender: FDA-Public Use
  Company Number: ES-GLAXOSMITHKLINE-B0984477A

PATIENT
  Age: 29 Year
  Sex: Female

DRUGS (2)
  1. ONDANSETRON [Suspect]
     Active Substance: ONDANSETRON
     Indication: INVASIVE DUCTAL BREAST CARCINOMA
     Dosage: 8 MG, UNK
     Route: 042
  2. DEXAMETHASONE. [Concomitant]
     Active Substance: DEXAMETHASONE
     Indication: INVASIVE DUCTAL BREAST CARCINOMA
     Dosage: 40 MG, UNK
     Route: 042

REACTIONS (7)
  - Odynophagia [Unknown]
  - Pruritus generalised [Recovered/Resolved]
  - Allergic oedema [Unknown]
  - Dyspnoea [Recovered/Resolved]
  - Anaphylactic reaction [Unknown]
  - Vulvovaginal pruritus [Recovered/Resolved]
  - Hypersensitivity [Recovered/Resolved]
